FAERS Safety Report 11349765 (Version 1)
Quarter: 2015Q3

REPORT INFORMATION
  Report Type: Spontaneous
  Country: US (occurrence: US)
  Receive Date: 20150807
  Receipt Date: 20150807
  Transmission Date: 20151125
  Serious: Yes (Other)
  Sender: FDA-Public Use
  Company Number: US-JNJFOC-20150800427

PATIENT
  Sex: Female

DRUGS (4)
  1. INVOKANA [Suspect]
     Active Substance: CANAGLIFLOZIN
     Indication: PRODUCT USED FOR UNKNOWN INDICATION
     Route: 048
     Dates: start: 2014
  2. JANUMET [Concomitant]
     Active Substance: METFORMIN HYDROCHLORIDE\SITAGLIPTIN PHOSPHATE
     Route: 065
  3. PREDNISONE. [Concomitant]
     Active Substance: PREDNISONE
     Route: 065
     Dates: end: 2015
  4. INSULIN [Concomitant]
     Active Substance: INSULIN NOS
     Route: 065

REACTIONS (10)
  - Depression [Unknown]
  - Arthritis [Unknown]
  - Lymphadenopathy [Unknown]
  - Blood glucose increased [Unknown]
  - Memory impairment [Unknown]
  - Impaired driving ability [Unknown]
  - Headache [Unknown]
  - Pain [Unknown]
  - Dyskinesia [Unknown]
  - Visual impairment [Unknown]
